FAERS Safety Report 14612809 (Version 1)
Quarter: 2018Q1

REPORT INFORMATION
  Report Type: Spontaneous
  Country: JP (occurrence: JP)
  Receive Date: 20180308
  Receipt Date: 20180308
  Transmission Date: 20180509
  Serious: Yes (Death)
  Sender: FDA-Public Use
  Company Number: JP-BAYER-J199100117

PATIENT
  Age: 74 Year
  Sex: Male

DRUGS (10)
  1. NITOROL [Concomitant]
     Active Substance: ISOSORBIDE DINITRATE
     Route: 048
     Dates: start: 19910409, end: 19910811
  2. ADALAT CC [Concomitant]
     Active Substance: NIFEDIPINE
     Route: 048
     Dates: start: 19900423, end: 19910811
  3. CIPROXAN 200 MG [Suspect]
     Active Substance: CIPROFLOXACIN
     Route: 048
     Dates: start: 19910807, end: 19910808
  4. MUCOSOLVAN [Concomitant]
     Active Substance: AMBROXOL HYDROCHLORIDE
     Route: 048
     Dates: start: 19910807, end: 19910808
  5. SELOKEN [METOPROLOL TARTRATE] [Concomitant]
     Route: 048
     Dates: start: 19910409, end: 19910811
  6. WARFARIN [Concomitant]
     Active Substance: WARFARIN
     Route: 048
     Dates: start: 19910409, end: 19910811
  7. TRIPELENNAMINE [Concomitant]
     Active Substance: TRIPELENNAMINE
     Route: 048
     Dates: start: 19910723, end: 19910811
  8. SIGMART [Concomitant]
     Active Substance: NICORANDIL
     Route: 048
     Dates: start: 19910409, end: 19910811
  9. DIGOXIN [DIGOXIN] [Concomitant]
     Active Substance: DIGOXIN
     Route: 048
     Dates: start: 19910409, end: 19910811
  10. ALDACTONE A [Concomitant]
     Active Substance: SPIRONOLACTONE
     Route: 048
     Dates: start: 19910409, end: 19910811

REACTIONS (3)
  - Acute respiratory distress syndrome [None]
  - Stevens-Johnson syndrome [None]
  - Death [Fatal]
